FAERS Safety Report 6875288-8 (Version None)
Quarter: 2010Q3

REPORT INFORMATION
  Report Type: 
  Country: None (occurrence: None)
  Receive Date: 20100727
  Receipt Date: 20100715
  Transmission Date: 20110219
  Serious: Yes (Other)
  Sender: FDA-Public Use
  Company Number: ZA-JNJFOC-20100705152

PATIENT
  Sex: Female
  Weight: 60 kg

DRUGS (1)
  1. REVELLEX [Suspect]
     Indication: RHEUMATOID ARTHRITIS
     Dosage: A TOTAL OF 2 DOSES
     Route: 042

REACTIONS (2)
  - ANKLE FRACTURE [None]
  - FALL [None]
